FAERS Safety Report 25112889 (Version 1)
Quarter: 2025Q1

REPORT INFORMATION
  Report Type: Spontaneous
  Country: JP (occurrence: JP)
  Receive Date: 20250324
  Receipt Date: 20250324
  Transmission Date: 20250409
  Serious: Yes (Hospitalization)
  Sender: ELI LILLY AND COMPANY
  Company Number: JP-ELI_LILLY_AND_COMPANY-JP202303006504

PATIENT
  Age: 55 Year
  Sex: Female

DRUGS (22)
  1. TADALAFIL [Suspect]
     Active Substance: TADALAFIL
     Indication: Pulmonary arterial hypertension
     Dosage: 40 MG, UNKNOWN
     Route: 048
     Dates: start: 20210315
  2. UPTRAVI [Suspect]
     Active Substance: SELEXIPAG
     Indication: Pulmonary arterial hypertension
     Dosage: 0.2 MG, BID
     Route: 048
     Dates: start: 20190103, end: 20190227
  3. UPTRAVI [Suspect]
     Active Substance: SELEXIPAG
     Dosage: 0.4 UNK
     Route: 048
     Dates: start: 20190228, end: 20190327
  4. UPTRAVI [Suspect]
     Active Substance: SELEXIPAG
     Dosage: 1.0 MG, BID
     Route: 048
     Dates: start: 20190328, end: 20190424
  5. UPTRAVI [Suspect]
     Active Substance: SELEXIPAG
     Dosage: 0.6 UNK
     Route: 048
     Dates: start: 20190425, end: 20240529
  6. UPTRAVI [Suspect]
     Active Substance: SELEXIPAG
     Dosage: 0.8 MG, BID
     Route: 048
     Dates: start: 20190530, end: 20210312
  7. UPTRAVI [Suspect]
     Active Substance: SELEXIPAG
     Dosage: 1.4 MG, BID
     Route: 048
     Dates: start: 20210313, end: 20210315
  8. UPTRAVI [Suspect]
     Active Substance: SELEXIPAG
     Dosage: 0.6 MG, BID
     Route: 048
     Dates: start: 20210316, end: 20210408
  9. OPSUMIT [Concomitant]
     Active Substance: MACITENTAN
     Indication: Pulmonary arterial hypertension
     Dosage: 10 MG, DAILY
     Route: 048
  10. EPOPROSTENOL SODIUM [Concomitant]
     Active Substance: EPOPROSTENOL SODIUM
     Indication: Pulmonary arterial hypertension
     Route: 042
     Dates: start: 20200127
  11. ADEMPAS [Concomitant]
     Active Substance: RIOCIGUAT
     Indication: Pulmonary arterial hypertension
     Dosage: 7.5 MG, DAILY
     Route: 048
     Dates: end: 20240314
  12. ATORVASTATIN CALCIUM TRIHYDRATE [Concomitant]
     Active Substance: ATORVASTATIN CALCIUM TRIHYDRATE
     Indication: Product used for unknown indication
     Dosage: 10 MG, DAILY
     Route: 048
  13. PREDNISOLONE [Concomitant]
     Active Substance: PREDNISOLONE
     Indication: Product used for unknown indication
     Dosage: 2 MG, DAILY
     Route: 048
  14. FUROSEMIDE [Concomitant]
     Active Substance: FUROSEMIDE
     Indication: Cardiac failure
     Dosage: 80 MG, DAILY
     Route: 048
  15. K SUPPLY [POTASSIUM CHLORIDE] [Concomitant]
     Indication: Product used for unknown indication
     Dosage: 1800 MG, DAILY
     Route: 048
  16. CINAL [ASCORBIC ACID;CALCIUM PANTOTHENATE] [Concomitant]
     Indication: Product used for unknown indication
     Dosage: 3 G, DAILY
     Route: 048
  17. LAC B [BIFIDOBACTERIUM BIFIDUM] [Concomitant]
     Indication: Prophylaxis
     Dosage: 3 DOSAGE FORM, DAILY
     Route: 048
  18. ICOSAPENT ETHYL [Concomitant]
     Active Substance: ICOSAPENT ETHYL
     Indication: Prophylaxis
     Dosage: 1200 MG, DAILY
     Route: 048
  19. ICOSAPENT ETHYL [Concomitant]
     Active Substance: ICOSAPENT ETHYL
  20. RABEPRAZOLE SODIUM [Concomitant]
     Active Substance: RABEPRAZOLE SODIUM
     Indication: Prophylaxis
     Dosage: 10 MG, DAILY
     Route: 048
  21. TRANEXAMIC ACID [Concomitant]
     Active Substance: TRANEXAMIC ACID
     Dosage: 250 MG, DAILY
     Route: 048
     Dates: start: 20201029, end: 20201106
  22. LOPERAMIDE HYDROCHLORIDE [Concomitant]
     Active Substance: LOPERAMIDE HYDROCHLORIDE
     Indication: Prophylaxis
     Route: 048
     Dates: start: 20201116, end: 20210104

REACTIONS (12)
  - Right ventricular failure [Recovering/Resolving]
  - Vascular device infection [Recovered/Resolved]
  - Dehydration [Recovered/Resolved]
  - Anaemia [Recovering/Resolving]
  - Portal hypertension [Not Recovered/Not Resolved]
  - Upper gastrointestinal haemorrhage [Recovering/Resolving]
  - Anaemia [Recovering/Resolving]
  - Shock haemorrhagic [Recovered/Resolved]
  - Acute kidney injury [Recovering/Resolving]
  - Metabolic acidosis [Recovered/Resolved]
  - Atrial fibrillation [Recovered/Resolved]
  - Gastritis erosive [Unknown]

NARRATIVE: CASE EVENT DATE: 20190826
